FAERS Safety Report 4266644-5 (Version None)
Quarter: 2004Q1

REPORT INFORMATION
  Report Type: 
  Country: None (occurrence: None)
  Receive Date: 20040108
  Receipt Date: 20040108
  Transmission Date: 20041129
  Serious: No
  Sender: FDA-Public Use
  Company Number: None

PATIENT
  Age: 59 Year
  Sex: Female
  Weight: 55.611 kg

DRUGS (10)
  1. TAXOTERE [Suspect]
     Indication: OROPHARYNGEAL CANCER STAGE UNSPECIFIED
     Dosage: 75 MG/M2
     Dates: start: 20031028
  2. TAXOTERE [Suspect]
     Indication: OROPHARYNGEAL CANCER STAGE UNSPECIFIED
     Dosage: 75 MG/M2
     Dates: start: 20031118
  3. TAXOTERE [Suspect]
     Indication: OROPHARYNGEAL CANCER STAGE UNSPECIFIED
     Dosage: 75 MG/M2
     Dates: start: 20031209
  4. CISPLATIN [Suspect]
     Indication: OROPHARYNGEAL CANCER STAGE UNSPECIFIED
     Dosage: 75 MG/M2
     Dates: start: 20031028
  5. CARBOPLATIN [Suspect]
     Indication: OROPHARYNGEAL CANCER STAGE UNSPECIFIED
     Dosage: AUC = 6
     Dates: start: 20031118
  6. CARBOPLATIN [Suspect]
     Indication: OROPHARYNGEAL CANCER STAGE UNSPECIFIED
     Dosage: AUC = 6
     Dates: start: 20031209
  7. DURAGESIC [Concomitant]
  8. PERCOCET [Concomitant]
  9. COUMADIN [Concomitant]
  10. HEPARIN [Concomitant]

REACTIONS (3)
  - EPISTAXIS [None]
  - HEPARIN-INDUCED THROMBOCYTOPENIA [None]
  - LARYNGEAL CANCER [None]
